FAERS Safety Report 6709332-5 (Version None)
Quarter: 2010Q2

REPORT INFORMATION
  Report Type: 
  Country: None (occurrence: None)
  Receive Date: 20100428
  Receipt Date: 20100112
  Transmission Date: 20101027
  Serious: No
  Sender: FDA-Public Use
  Company Number: 2010-00034

PATIENT
  Age: 62 Year
  Sex: Male
  Weight: 86.1834 kg

DRUGS (4)
  1. COLD REMEDY NASAL GEL [Suspect]
     Dosage: QD - ONE DOSE
     Dates: start: 20100110, end: 20100110
  2. QUINAPRIL [Concomitant]
  3. OMEPRAZOLE [Concomitant]
  4. FINASTERIDE [Concomitant]

REACTIONS (3)
  - AGEUSIA [None]
  - ANOSMIA [None]
  - NASAL DISCOMFORT [None]
